FAERS Safety Report 13965111 (Version 1)
Quarter: 2017Q3

REPORT INFORMATION
  Report Type: Report from Study
  Country: TW (occurrence: TW)
  Receive Date: 20170913
  Receipt Date: 20170913
  Transmission Date: 20171128
  Serious: Yes (Death, Life-Threatening, Hospitalization)
  Sender: FDA-Public Use
  Company Number: TW-BAYER-2017-032376

PATIENT
  Age: 23 Year
  Sex: Female
  Weight: 45 kg

DRUGS (3)
  1. LIPIODOL [Concomitant]
     Active Substance: ETHIODIZED OIL
  2. DOXORUBICIN [Concomitant]
     Active Substance: DOXORUBICIN
  3. NEXAVAR [Suspect]
     Active Substance: SORAFENIB
     Indication: HEPATOCELLULAR CARCINOMA
     Dosage: 400 MG, QD
     Route: 048
     Dates: start: 20160329

REACTIONS (2)
  - Respiratory failure [Fatal]
  - Hepatocellular carcinoma [Fatal]

NARRATIVE: CASE EVENT DATE: 20160411
